FAERS Safety Report 6780026-3 (Version None)
Quarter: 2010Q2

REPORT INFORMATION
  Report Type: 
  Country: None (occurrence: None)
  Receive Date: 20100618
  Receipt Date: 20100607
  Transmission Date: 20101027
  Serious: Yes (Hospitalization)
  Sender: FDA-Public Use
  Company Number: DE-ELI_LILLY_AND_COMPANY-DE201006002289

PATIENT
  Age: 28 Year
  Sex: Male

DRUGS (16)
  1. ZYPREXA [Suspect]
     Indication: SCHIZOPHRENIA
     Dosage: 20 MG, UNK
     Route: 048
     Dates: start: 20091001, end: 20091004
  2. ZYPREXA [Suspect]
     Dosage: 15 MG, UNK
     Route: 048
     Dates: start: 20091005, end: 20091008
  3. ZYPREXA [Suspect]
     Dosage: 20 MG, UNK
     Route: 048
     Dates: start: 20091009, end: 20091026
  4. ZYPREXA [Suspect]
     Dosage: 15 MG, UNK
     Route: 048
     Dates: start: 20091027, end: 20091115
  5. ZYPREXA [Suspect]
     Dosage: 10 MG, UNK
     Route: 048
     Dates: start: 20091116, end: 20091117
  6. SOLIAN [Concomitant]
     Dosage: 400 MG, UNK
     Route: 048
     Dates: start: 20091019, end: 20091026
  7. SOLIAN [Concomitant]
     Dosage: 600 MG, UNK
     Route: 048
     Dates: start: 20091027, end: 20091106
  8. SOLIAN [Concomitant]
     Dosage: 700 MG, UNK
     Route: 048
     Dates: start: 20091107, end: 20091107
  9. SOLIAN [Concomitant]
     Dosage: 800 MG, UNK
     Route: 048
     Dates: start: 20091108, end: 20091118
  10. SOLIAN [Concomitant]
     Dosage: 700 MG, UNK
     Route: 048
     Dates: start: 20091119, end: 20091122
  11. SOLIAN [Concomitant]
     Dosage: 700 MG, UNK
     Route: 048
     Dates: start: 20091123, end: 20091202
  12. SOLIAN [Concomitant]
     Dosage: 500 MG, UNK
     Route: 048
     Dates: start: 20091203, end: 20091204
  13. SOLIAN [Concomitant]
     Dosage: 400 MG, UNK
     Route: 048
     Dates: start: 20091205, end: 20091207
  14. LORAZEPAM [Concomitant]
     Dosage: 2 MG, UNK
     Route: 048
     Dates: start: 20091006, end: 20091025
  15. LORAZEPAM [Concomitant]
     Dosage: 2 MG, UNK
     Route: 048
     Dates: start: 20091026, end: 20091102
  16. RISPERDAL CONSTA [Concomitant]
     Dosage: 37.5 MG, 2/M
     Route: 030
     Dates: start: 20091112

REACTIONS (3)
  - AUTOIMMUNE THROMBOCYTOPENIA [None]
  - PETECHIAE [None]
  - THROMBOCYTOPENIA [None]
